FAERS Safety Report 8580706 (Version 2)
Quarter: 2013Q3

REPORT INFORMATION
  Report Type: Spontaneous
  Country: US (occurrence: US)
  Receive Date: 20120525
  Receipt Date: 20130801
  Transmission Date: 20140515
  Serious: Yes (Other)
  Sender: FDA-Public Use
  Company Number: US-ROCHE-1040780

PATIENT
  Age: 17 Year
  Sex: Female
  Weight: 52.21 kg

DRUGS (3)
  1. ACCUTANE [Suspect]
     Indication: ACNE
     Route: 065
     Dates: start: 2000, end: 2002
  2. ACCUTANE [Suspect]
     Route: 065
     Dates: start: 20020205
  3. MINOCYCLINE [Concomitant]
     Route: 065
     Dates: start: 20010413

REACTIONS (8)
  - Colitis ulcerative [Unknown]
  - Irritable bowel syndrome [Unknown]
  - Depression [Unknown]
  - Syncope [Unknown]
  - Blood cholesterol increased [Unknown]
  - Hepatic enzyme increased [Unknown]
  - Headache [Unknown]
  - Dry skin [Unknown]
